FAERS Safety Report 6224827-9 (Version None)
Quarter: 2009Q2

REPORT INFORMATION
  Report Type: 
  Country: None (occurrence: None)
  Receive Date: 20090612
  Receipt Date: 20090330
  Transmission Date: 20091009
  Serious: No
  Sender: FDA-Public Use
  Company Number: US-ABBOTT-09P-163-0565457-00

PATIENT
  Sex: Female
  Weight: 90.8 kg

DRUGS (6)
  1. HUMIRA [Suspect]
     Indication: DRUG USE FOR UNKNOWN INDICATION
     Dates: start: 20080101
  2. HUMIRA [Suspect]
     Route: 058
     Dates: start: 20090301
  3. HUMIRA [Suspect]
     Dates: end: 20090301
  4. TYLENOL W/ CODEINE NO. 4 [Concomitant]
     Indication: DRUG USE FOR UNKNOWN INDICATION
  5. ADVAIR HFA [Concomitant]
     Indication: ASTHMA
  6. SINGULAIR [Concomitant]
     Indication: ASTHMA

REACTIONS (4)
  - INJECTION SITE PRURITUS [None]
  - INJECTION SITE URTICARIA [None]
  - PNEUMONIA [None]
  - UNEVALUABLE EVENT [None]
